FAERS Safety Report 22233969 (Version 1)
Quarter: 2023Q2

REPORT INFORMATION
  Report Type: Spontaneous
  Country: US (occurrence: None)
  Receive Date: 20230420
  Receipt Date: 20230420
  Transmission Date: 20230722
  Serious: No
  Sender: FDA-Public Use
  Company Number: US-ROCHE-3064938

PATIENT
  Sex: Female

DRUGS (15)
  1. ESBRIET [Suspect]
     Active Substance: PIRFENIDONE
     Indication: Interstitial lung disease
     Route: 048
  2. ALENDRONATE [Concomitant]
     Active Substance: ALENDRONATE SODIUM
  3. AMLODIPINE [Concomitant]
     Active Substance: AMLODIPINE BESYLATE
  4. BENZONATATE [Concomitant]
     Active Substance: BENZONATATE
  5. ELIQUIS [Concomitant]
     Active Substance: APIXABAN
  6. FUROSEMIDE [Concomitant]
     Active Substance: FUROSEMIDE
  7. GUAIFENESIN [Concomitant]
     Active Substance: GUAIFENESIN
     Dosage: 100-10 MG
  8. ALEVE [Concomitant]
     Active Substance: NAPROXEN SODIUM
  9. ASPIRIN [Concomitant]
     Active Substance: ASPIRIN
  10. BIOTIN [Concomitant]
     Active Substance: BIOTIN
  11. CALCIUM [Concomitant]
     Active Substance: CALCIUM
  12. LISINOPRIL [Concomitant]
     Active Substance: LISINOPRIL
  13. METOPROLOL [Concomitant]
     Active Substance: METOPROLOL
  14. METOPROLOL [Concomitant]
     Active Substance: METOPROLOL
  15. ROSUVASTATIN [Concomitant]
     Active Substance: ROSUVASTATIN

REACTIONS (1)
  - Diarrhoea [Recovered/Resolved]
